FAERS Safety Report 5250317-6 (Version None)
Quarter: 2007Q1

REPORT INFORMATION
  Report Type: 
  Country: None (occurrence: None)
  Receive Date: 20070228
  Receipt Date: 20060323
  Transmission Date: 20070707
  Serious: No
  Sender: FDA-Public Use
  Company Number: US-GLAXOSMITHKLINE-A0598838A

PATIENT
  Age: 63 Year
  Sex: Female

DRUGS (3)
  1. LAMICTAL [Suspect]
     Indication: BIPOLAR DISORDER
     Dosage: 100MG TWICE PER DAY
     Route: 048
  2. CYMBALTA [Concomitant]
  3. ABILIFY [Concomitant]

REACTIONS (2)
  - RASH [None]
  - TARDIVE DYSKINESIA [None]
